FAERS Safety Report 24951294 (Version 1)
Quarter: 2025Q1

REPORT INFORMATION
  Report Type: Spontaneous
  Country: IT (occurrence: IT)
  Receive Date: 20250210
  Receipt Date: 20250210
  Transmission Date: 20250409
  Serious: Yes (Death, Other)
  Sender: AMGEN
  Company Number: IT-AMGEN-ITASP2025023476

PATIENT

DRUGS (1)
  1. BEVACIZUMAB [Suspect]
     Active Substance: BEVACIZUMAB
     Indication: Ovarian cancer
     Route: 065

REACTIONS (5)
  - Death [Fatal]
  - Ovarian cancer [Fatal]
  - Ovarian cancer recurrent [Unknown]
  - Ovarian cancer metastatic [Unknown]
  - General physical condition abnormal [Unknown]
